FAERS Safety Report 8570187-8 (Version None)
Quarter: 2012Q3

REPORT INFORMATION
  Report Type: 
  Country: None (occurrence: None)
  Receive Date: 20120803
  Receipt Date: 20110601
  Transmission Date: 20120928
  Serious: Yes (Hospitalization)
  Sender: FDA-Public Use
  Company Number: JP-GILEAD-2011-0036715

PATIENT
  Sex: Female

DRUGS (6)
  1. PROGRAF [Suspect]
     Indication: PROPHYLAXIS AGAINST TRANSPLANT REJECTION
     Route: 048
     Dates: start: 20030301
  2. HEPSERA [Suspect]
     Indication: HEPATIC CIRRHOSIS
     Dosage: 10 MG, QD
     Route: 048
     Dates: start: 20050302, end: 20090804
  3. LAMIVUDINE [Suspect]
     Indication: HEPATIC CIRRHOSIS
     Route: 048
     Dates: start: 20030228, end: 20080804
  4. ADALAT [Concomitant]
     Indication: PRODUCT USED FOR UNKNOWN INDICATION
     Route: 048
     Dates: start: 20060614
  5. URSODIOL [Concomitant]
     Indication: PRODUCT USED FOR UNKNOWN INDICATION
     Route: 048
     Dates: start: 20030416
  6. PURSENNID [Concomitant]
     Indication: CONSTIPATION
     Dates: start: 20051017

REACTIONS (18)
  - BACK PAIN [None]
  - RENAL GLYCOSURIA [None]
  - HYPOPHOSPHATAEMIA [None]
  - MUSCULOSKELETAL PAIN [None]
  - ARTHRALGIA [None]
  - AMINOACIDURIA [None]
  - METABOLIC ACIDOSIS [None]
  - BLOOD GLUCOSE INCREASED [None]
  - URINE URIC ACID INCREASED [None]
  - BLOOD CREATININE INCREASED [None]
  - BONE PAIN [None]
  - BLOOD CHLORIDE INCREASED [None]
  - BLOOD SODIUM INCREASED [None]
  - BLOOD URIC ACID DECREASED [None]
  - BLOOD ALKALINE PHOSPHATASE INCREASED [None]
  - ANION GAP NORMAL [None]
  - BLOOD PHOSPHORUS DECREASED [None]
  - FANCONI SYNDROME ACQUIRED [None]
